FAERS Safety Report 7983179-4 (Version None)
Quarter: 2011Q4

REPORT INFORMATION
  Report Type: 
  Country: None (occurrence: None)
  Receive Date: 20111215
  Receipt Date: 20111206
  Transmission Date: 20120403
  Serious: Yes (Death, Hospitalization)
  Sender: FDA-Public Use
  Company Number: US-ACTELION-A-US2011-57725

PATIENT

DRUGS (10)
  1. TRACLEER [Suspect]
     Dosage: 62.5 MG, UNK
     Route: 048
     Dates: start: 20100601, end: 20110906
  2. LEVOTHYROXIN KSA [Concomitant]
  3. POTASSIUM CHLORIDE [Concomitant]
  4. NASACORT [Concomitant]
  5. TRACLEER [Suspect]
     Indication: PULMONARY ARTERIAL HYPERTENSION
     Dosage: 125 MG, UNK
     Route: 048
     Dates: start: 20100907, end: 20111124
  6. FUROSEMIDE [Concomitant]
  7. SINGULAIR [Concomitant]
  8. OXYGEN [Concomitant]
  9. ALBUTEROL SULFATE [Concomitant]
  10. REVATIO [Concomitant]

REACTIONS (13)
  - UNRESPONSIVE TO STIMULI [None]
  - FALL [None]
  - PERIORBITAL HAEMATOMA [None]
  - TREMOR [None]
  - DYSPNOEA [None]
  - DIZZINESS [None]
  - RESPIRATORY FAILURE [None]
  - NON-CARDIAC CHEST PAIN [None]
  - PNEUMONIA [None]
  - LACERATION [None]
  - ANXIETY [None]
  - PLEURAL EFFUSION [None]
  - AMNESIA [None]
